FAERS Safety Report 9957462 (Version 1)
Quarter: 2014Q1

REPORT INFORMATION
  Report Type: Report from Study
  Country: US (occurrence: US)
  Receive Date: 20140304
  Receipt Date: 20140304
  Transmission Date: 20141002
  Serious: No
  Sender: FDA-Public Use
  Company Number: US-ABBVIE-13P-163-1097057-00

PATIENT
  Age: 63 Year
  Sex: Female

DRUGS (16)
  1. HUMIRA [Suspect]
     Indication: RHEUMATOID ARTHRITIS
     Dates: start: 20121228
  2. SYMBICORT [Concomitant]
     Indication: ASTHMA
  3. SYMBICORT [Concomitant]
     Indication: BRONCHITIS
  4. PROAIR [Concomitant]
     Indication: ASTHMA
  5. PROAIR [Concomitant]
     Indication: BRONCHITIS
  6. AEROSOLS [Concomitant]
     Indication: DYSPNOEA
  7. ZOLOFT [Concomitant]
     Indication: DEPRESSION
     Dosage: 50MG DAILY
  8. LLSINOPRIL [Concomitant]
     Indication: HYPERTENSION
  9. TENORMIN [Concomitant]
     Indication: HYPERTENSION
     Dosage: 25MG DAILY
  10. AMLODIPINE [Concomitant]
     Indication: HYPERTENSION
     Dosage: 10MG DAILY
  11. LASIX [Concomitant]
     Indication: SWELLING
     Dosage: 40MG DAILY
  12. NEXIUM [Concomitant]
     Indication: GASTROOESOPHAGEAL REFLUX DISEASE
     Dosage: 40MG DAILY
  13. METHOTREXATE [Concomitant]
     Indication: RHEUMATOID ARTHRITIS
  14. TRAMADOL [Concomitant]
     Indication: PAIN
     Dosage: UP TO THREE TIMES
  15. CPAP O2 4L/NC-O2 SATS [Concomitant]
     Indication: SLEEP APNOEA SYNDROME
     Dosage: AVERAGE 92-93%, AT NIGHT
  16. OXYGEN [Concomitant]
     Indication: SLEEP APNOEA SYNDROME
     Dosage: PORTABLE TANK

REACTIONS (1)
  - Nasopharyngitis [Recovering/Resolving]
